FAERS Safety Report 15462157 (Version 2)
Quarter: 2018Q4

REPORT INFORMATION
  Report Type: Spontaneous
  Country: GB (occurrence: GB)
  Receive Date: 20181004
  Receipt Date: 20181129
  Transmission Date: 20190204
  Serious: Yes (Other)
  Sender: FDA-Public Use
  Company Number: GB-ACCORD-072868

PATIENT
  Age: 49 Year
  Sex: Female

DRUGS (6)
  1. BOSENTAN. [Suspect]
     Active Substance: BOSENTAN
     Indication: SCLERODERMA ASSOCIATED DIGITAL ULCER
  2. MINOCYCLINE [Suspect]
     Active Substance: MINOCYCLINE\MINOCYCLINE HYDROCHLORIDE
     Indication: SCLERODERMA ASSOCIATED DIGITAL ULCER
     Dosage: 100 MG,BID
  3. RAMIPRIL. [Suspect]
     Active Substance: RAMIPRIL
     Indication: SYSTEMIC SCLERODERMA
  4. SILDENAFIL/SILDENAFIL CITRATE [Suspect]
     Active Substance: SILDENAFIL CITRATE
     Indication: SCLERODERMA ASSOCIATED DIGITAL ULCER
  5. DILTIAZEM. [Suspect]
     Active Substance: DILTIAZEM
     Indication: SCLERODERMA ASSOCIATED DIGITAL ULCER
  6. CANDESARTAN. [Suspect]
     Active Substance: CANDESARTAN
     Indication: SCLERODERMA ASSOCIATED DIGITAL ULCER

REACTIONS (3)
  - Off label use [Unknown]
  - Skin ulcer [Unknown]
  - Skin hyperpigmentation [Unknown]
